FAERS Safety Report 14841678 (Version 1)
Quarter: 2018Q2

REPORT INFORMATION
  Report Type: Spontaneous
  Country: US (occurrence: US)
  Receive Date: 20180503
  Receipt Date: 20180503
  Transmission Date: 20180711
  Serious: Yes (Other)
  Sender: FDA-Public Use
  Company Number: US-REGENERON PHARMACEUTICALS, INC.-2018-18576

PATIENT

DRUGS (2)
  1. EYLEA [Suspect]
     Active Substance: AFLIBERCEPT
     Dosage: 2 MG, MONTHLY, LEFT EYE, LAST DOSE
     Route: 031
     Dates: start: 20180309, end: 20180309
  2. EYLEA [Suspect]
     Active Substance: AFLIBERCEPT
     Indication: DIABETIC RETINAL OEDEMA
     Dosage: 2 MG, MONTHLY, LEFT EYE
     Route: 031
     Dates: start: 20150319

REACTIONS (2)
  - Endophthalmitis [Recovered/Resolved]
  - Hypotony of eye [Unknown]

NARRATIVE: CASE EVENT DATE: 20180312
